FAERS Safety Report 5920404-5 (Version None)
Quarter: 2008Q4

REPORT INFORMATION
  Report Type: 
  Country: None (occurrence: None)
  Receive Date: 20081016
  Receipt Date: 20081008
  Transmission Date: 20090506
  Serious: Yes (Other)
  Sender: FDA-Public Use
  Company Number: JP-ABBOTT-08P-087-0481057-00

PATIENT
  Age: 41 Year
  Sex: Male

DRUGS (3)
  1. OZEX TABLETS [Suspect]
     Indication: PHARYNGITIS
     Route: 048
     Dates: start: 20080605, end: 20080607
  2. MUCODYNE TABLETS [Suspect]
     Indication: DRUG USE FOR UNKNOWN INDICATION
     Route: 048
     Dates: start: 20080605, end: 20080607
  3. LOXONIN TABLETS [Suspect]
     Indication: DRUG USE FOR UNKNOWN INDICATION
     Dosage: 60 MG DAILY
     Route: 048
     Dates: start: 20080605

REACTIONS (2)
  - DEHYDRATION [None]
  - RHABDOMYOLYSIS [None]
